FAERS Safety Report 10228052 (Version 1)
Quarter: 2014Q2

REPORT INFORMATION
  Report Type: Spontaneous
  Country: CO (occurrence: CO)
  Receive Date: 20140610
  Receipt Date: 20140610
  Transmission Date: 20141212
  Serious: Yes (Other)
  Sender: FDA-Public Use
  Company Number: CO-PFIZER INC-2014158707

PATIENT
  Sex: Female

DRUGS (1)
  1. EPAMIN [Suspect]
     Dosage: 100 MG, 1X/DAY
     Route: 048

REACTIONS (2)
  - Thrombosis [Unknown]
  - Gallbladder disorder [Unknown]
